FAERS Safety Report 21929010 (Version 1)
Quarter: 2023Q1

REPORT INFORMATION
  Report Type: Report from Study
  Country: US (occurrence: US)
  Receive Date: 20230131
  Receipt Date: 20230131
  Transmission Date: 20230417
  Serious: Yes (Hospitalization)
  Sender: FDA-Public Use
  Company Number: US-ABBVIE-4268410

PATIENT
  Age: 63 Year
  Sex: Female

DRUGS (1)
  1. RINVOQ [Suspect]
     Active Substance: UPADACITINIB
     Indication: Rheumatoid arthritis
     Route: 048
     Dates: start: 20221025, end: 20230111

REACTIONS (7)
  - Delusion [Unknown]
  - Influenza [Recovering/Resolving]
  - Hyperhidrosis [Unknown]
  - Fall [Unknown]
  - Discomfort [Unknown]
  - Immunodeficiency [Unknown]
  - Viral infection [Unknown]

NARRATIVE: CASE EVENT DATE: 20230101
